FAERS Safety Report 4508557-7 (Version None)
Quarter: 2004Q4

REPORT INFORMATION
  Report Type: 
  Country: None (occurrence: None)
  Receive Date: 20041123
  Receipt Date: 20040331
  Transmission Date: 20050328
  Serious: No
  Sender: FDA-Public Use
  Company Number: US-GLAXOSMITHKLINE-A0505419A

PATIENT
  Age: 40 Year
  Sex: Female

DRUGS (3)
  1. WELLBUTRIN [Suspect]
     Indication: DEPRESSION
     Dosage: 150MG TWICE PER DAY
     Route: 048
     Dates: start: 20030101
  2. DETROL LA [Concomitant]
  3. YASMIN [Concomitant]

REACTIONS (4)
  - FEELING ABNORMAL [None]
  - INCREASED APPETITE [None]
  - INSOMNIA [None]
  - WEIGHT INCREASED [None]
